FAERS Safety Report 20521823 (Version 1)
Quarter: 2022Q1

REPORT INFORMATION
  Report Type: Spontaneous
  Country: US (occurrence: US)
  Receive Date: 20220226
  Receipt Date: 20220226
  Transmission Date: 20220423
  Serious: Yes (Other)
  Sender: FDA-Public Use
  Company Number: US-NOVARTISPH-NVSC2022US044775

PATIENT
  Age: 45 Year
  Sex: Male

DRUGS (3)
  1. RANITIDINE [Suspect]
     Active Substance: RANITIDINE
     Indication: Dyspepsia
     Dosage: ,,150 MG,,,,,WEEKLY,
     Route: 048
     Dates: start: 200301, end: 201404
  2. RANITIDINE [Suspect]
     Active Substance: RANITIDINE
     Indication: Dyspepsia
     Dosage: ,,150 MG,,,,,WEEKLY,
     Route: 048
     Dates: start: 200301, end: 201404
  3. RANITIDINE [Suspect]
     Active Substance: RANITIDINE
     Indication: Dyspepsia
     Dosage: ,,,UNKNOWN AT THIS TIME,,WEEKLY,
     Route: 048
     Dates: start: 200301, end: 201404

REACTIONS (4)
  - Prostate cancer [Recovering/Resolving]
  - Incorrect dose administered [Unknown]
  - Inappropriate schedule of product administration [Unknown]
  - Product use in unapproved indication [Unknown]

NARRATIVE: CASE EVENT DATE: 20140401
